FAERS Safety Report 6182764-2 (Version None)
Quarter: 2009Q2

REPORT INFORMATION
  Report Type: 
  Country: None (occurrence: None)
  Receive Date: 20090507
  Receipt Date: 20090427
  Transmission Date: 20091009
  Serious: Yes (Hospitalization)
  Sender: FDA-Public Use
  Company Number: US-AMGEN-US344830

PATIENT
  Age: 57 Year
  Sex: Female
  Weight: 97.9 kg

DRUGS (9)
  1. PROCRIT [Suspect]
     Indication: ANAEMIA
     Route: 058
     Dates: start: 20090121, end: 20090323
  2. UNSPECIFIED MEDICATION [Suspect]
     Route: 048
     Dates: start: 20081231
  3. PEG-INTRON [Suspect]
     Route: 058
     Dates: start: 20081203
  4. RIBAVIRIN [Suspect]
     Route: 048
     Dates: start: 20081203
  5. VERAPAMIL [Concomitant]
     Dates: start: 19900101
  6. LISINOPRIL [Concomitant]
     Dates: start: 19960101
  7. MAXZIDE [Concomitant]
     Dates: start: 19900101
  8. NORCO [Concomitant]
     Dates: start: 20050101
  9. CLIMARA [Concomitant]
     Dates: start: 20050101

REACTIONS (4)
  - ARTERIAL THROMBOSIS LIMB [None]
  - PAIN IN EXTREMITY [None]
  - PARAESTHESIA [None]
  - PULSE ABSENT [None]
